FAERS Safety Report 18764660 (Version 3)
Quarter: 2021Q2

REPORT INFORMATION
  Report Type: Report from Study
  Country: US (occurrence: US)
  Receive Date: 20210120
  Receipt Date: 20210409
  Transmission Date: 20210717
  Serious: Yes (Hospitalization)
  Sender: FDA-Public Use
  Company Number: US-JNJFOC-20210112271

PATIENT
  Age: 72 Year
  Sex: Female

DRUGS (4)
  1. SELEXIPAG [Suspect]
     Active Substance: SELEXIPAG
     Indication: PULMONARY ARTERIAL HYPERTENSION
     Route: 048
     Dates: start: 20200829
  2. MACITENTAN [Suspect]
     Active Substance: MACITENTAN
     Indication: PULMONARY ARTERIAL HYPERTENSION
     Route: 048
     Dates: start: 20180316
  3. MACITENTAN [Suspect]
     Active Substance: MACITENTAN
     Route: 048
     Dates: start: 20210120, end: 20210325
  4. SELEXIPAG [Suspect]
     Active Substance: SELEXIPAG
     Route: 048
     Dates: start: 20201231

REACTIONS (2)
  - Acute respiratory failure [Unknown]
  - Hospitalisation [Unknown]

NARRATIVE: CASE EVENT DATE: 20210106
